FAERS Safety Report 4469187-9 (Version None)
Quarter: 2004Q4

REPORT INFORMATION
  Report Type: 
  Country: None (occurrence: None)
  Receive Date: 20041005
  Receipt Date: 20041005
  Transmission Date: 20050328
  Serious: Yes (Other)
  Sender: FDA-Public Use
  Company Number: None

PATIENT
  Age: 43 Year
  Sex: Female
  Weight: 58.9676 kg

DRUGS (2)
  1. VIOXX [Suspect]
     Indication: CARPAL TUNNEL SYNDROME
     Dosage: 50 MG   ONE DAILY  ORAL
     Route: 048
     Dates: start: 20000515, end: 20031010
  2. VIOXX [Suspect]
     Indication: TENDONITIS
     Dosage: 50 MG   ONE DAILY  ORAL
     Route: 048
     Dates: start: 20000515, end: 20031010

REACTIONS (4)
  - CARDIAC FLUTTER [None]
  - HYPERTENSION [None]
  - PALPITATIONS [None]
  - STRESS SYMPTOMS [None]
